FAERS Safety Report 8455064-5 (Version None)
Quarter: 2012Q2

REPORT INFORMATION
  Report Type: 
  Country: None (occurrence: None)
  Receive Date: 20120621
  Receipt Date: 20120611
  Transmission Date: 20120825
  Serious: Yes (Other)
  Sender: FDA-Public Use
  Company Number: JP-VERTEX PHARMACEUTICALS INC.-AE-2012-008780

PATIENT
  Age: 51 Year
  Sex: Male

DRUGS (10)
  1. DILTIAZEM HCL [Concomitant]
     Route: 048
  2. TELAVIC (TELAPREVIR) [Suspect]
     Route: 048
     Dates: start: 20120516
  3. PEGINTERFERON ALFA-2B [Concomitant]
     Indication: HEPATITIS C
     Route: 051
     Dates: start: 20120418
  4. TELAVIC (TELAPREVIR) [Suspect]
     Indication: HEPATITIS C
     Route: 048
     Dates: start: 20120418, end: 20120515
  5. BISOPROLOL FUMARATE [Concomitant]
     Route: 048
  6. ISOSORBIDE MONONITRATE [Concomitant]
     Route: 048
  7. OLOPATADINE HCL [Concomitant]
     Route: 048
     Dates: start: 20120418, end: 20120424
  8. RIBAVIRIN [Concomitant]
     Indication: HEPATITIS C
     Route: 048
     Dates: start: 20120418
  9. DOMPERIDONE [Concomitant]
     Route: 048
     Dates: start: 20120418, end: 20120424
  10. ALLOPURINOL [Concomitant]
     Route: 048
     Dates: start: 20120418, end: 20120424

REACTIONS (1)
  - NEUTROPHIL COUNT DECREASED [None]
